FAERS Safety Report 10648227 (Version 1)
Quarter: 2014Q4

REPORT INFORMATION
  Report Type: Spontaneous
  Country: US (occurrence: None)
  Receive Date: 20141211
  Receipt Date: 20141211
  Transmission Date: 20150529
  Serious: Yes (Life-Threatening)
  Sender: FDA-Public Use
  Company Number: None

PATIENT
  Age: 91 Year
  Weight: 56.8 kg

DRUGS (9)
  1. LASIX [Concomitant]
     Active Substance: FUROSEMIDE
  2. OMEPRAZOLE. [Concomitant]
     Active Substance: OMEPRAZOLE
  3. OLANZAPINE. [Concomitant]
     Active Substance: OLANZAPINE
  4. TRILEPTAL [Concomitant]
     Active Substance: OXCARBAZEPINE
  5. XARELTO [Suspect]
     Active Substance: RIVAROXABAN
     Indication: DEEP VEIN THROMBOSIS
     Route: 048
  6. DILTIAZEM HYDROCHLORIDE EXTENDED RELEASE [Concomitant]
     Active Substance: DILTIAZEM HYDROCHLORIDE
  7. KLOR CON [Concomitant]
  8. ASA [Concomitant]
     Active Substance: ASPIRIN
  9. FERROUS SULFATE [Concomitant]
     Active Substance: FERROUS SULFATE\FERROUS SULFATE, DRIED

REACTIONS (5)
  - Brain midline shift [None]
  - Fall [None]
  - Subdural haematoma [None]
  - Haemorrhagic disorder [None]
  - Brain herniation [None]

NARRATIVE: CASE EVENT DATE: 20141204
